FAERS Safety Report 16014079 (Version 1)
Quarter: 2019Q1

REPORT INFORMATION
  Report Type: Spontaneous
  Country: CA (occurrence: CA)
  Receive Date: 20190227
  Receipt Date: 20190227
  Transmission Date: 20190418
  Serious: Yes (Hospitalization, Disabling, Other)
  Sender: FDA-Public Use
  Company Number: CA-PFIZER INC-2995381

PATIENT
  Sex: Female
  Weight: 64 kg

DRUGS (1)
  1. CEFTRIAXONE SODIUM. [Suspect]
     Active Substance: CEFTRIAXONE SODIUM
     Indication: INFECTION
     Dosage: 1 G, SINGLE (ONCE)
     Route: 042

REACTIONS (7)
  - Hypoaesthesia [Not Recovered/Not Resolved]
  - Rash [Not Recovered/Not Resolved]
  - Skin exfoliation [Not Recovered/Not Resolved]
  - Erythema [Not Recovered/Not Resolved]
  - Sensory loss [Not Recovered/Not Resolved]
  - Blister [Not Recovered/Not Resolved]
  - Pain in extremity [Not Recovered/Not Resolved]
